FAERS Safety Report 19913509 (Version 7)
Quarter: 2022Q4

REPORT INFORMATION
  Report Type: Report from Study
  Country: GB (occurrence: GB)
  Receive Date: 20211004
  Receipt Date: 20221010
  Transmission Date: 20230113
  Serious: Yes (Life-Threatening, Hospitalization, Other)
  Sender: FDA-Public Use
  Company Number: GB-ACCORD-239998

PATIENT
  Age: 45 Year
  Sex: Male
  Weight: 98.70 kg

DRUGS (34)
  1. CARBOPLATIN [Suspect]
     Active Substance: CARBOPLATIN
     Indication: Diffuse large B-cell lymphoma stage II
     Route: 042
  2. OXALIPLATIN [Suspect]
     Active Substance: OXALIPLATIN
     Indication: Diffuse large B-cell lymphoma stage II
     Route: 042
  3. CYTARABINE [Suspect]
     Active Substance: CYTARABINE
     Indication: Diffuse large B-cell lymphoma stage II
     Dosage: Q12H
     Route: 042
     Dates: start: 20210901, end: 20210901
  4. EPCORITAMAB [Suspect]
     Active Substance: EPCORITAMAB
     Indication: Diffuse large B-cell lymphoma stage II
     Dosage: 0.16 MILLIGRAM, SINGLE
     Route: 058
     Dates: start: 20210901, end: 20210901
  5. RITUXIMAB [Suspect]
     Active Substance: RITUXIMAB
     Indication: Diffuse large B-cell lymphoma stage II
     Dosage: 1Q3W
     Route: 042
     Dates: start: 20210831
  6. DEXAMETHASONE [Suspect]
     Active Substance: DEXAMETHASONE
     Indication: Diffuse large B-cell lymphoma stage II
     Dosage: SINGLE
     Route: 048
     Dates: start: 20210831, end: 20210831
  7. FRAGMIN [Suspect]
     Active Substance: DALTEPARIN SODIUM
     Indication: Prophylaxis
     Dosage: 5000 IU, 1X/DAY
     Route: 058
     Dates: start: 202107, end: 20210908
  8. CHLORPHENIRAMINE MALEATE [Concomitant]
     Active Substance: CHLORPHENIRAMINE MALEATE
     Dates: start: 20210908, end: 20210908
  9. ACETAMINOPHEN [Concomitant]
     Active Substance: ACETAMINOPHEN
     Dates: start: 20210908, end: 20210908
  10. ONDANSETRON [Concomitant]
     Active Substance: ONDANSETRON
     Dates: start: 20210901, end: 20210901
  11. ACYCLOVIR [Concomitant]
     Active Substance: ACYCLOVIR
     Dates: start: 202103
  12. FILGRASTIM [Concomitant]
     Active Substance: FILGRASTIM
     Dates: start: 202104
  13. FLUOXETINE [Concomitant]
     Active Substance: FLUOXETINE HYDROCHLORIDE
     Dates: start: 202103
  14. FOLIC ACID [Concomitant]
     Active Substance: FOLIC ACID
     Dates: start: 202104
  15. LANSOPRAZOLE [Concomitant]
     Active Substance: LANSOPRAZOLE
     Dates: start: 202104
  16. POSACONAZOLE [Concomitant]
     Active Substance: POSACONAZOLE
     Dates: start: 202107
  17. DEXAMETHASONE [Concomitant]
     Active Substance: DEXAMETHASONE
     Dates: start: 20210902, end: 20210911
  18. CARBOPLATIN [Suspect]
     Active Substance: CARBOPLATIN
     Indication: Diffuse large B-cell lymphoma stage II
     Dosage: 750 MG, 1Q3W (EVERY 3WEEKS)
     Route: 042
     Dates: start: 20210901
  19. CYTARABINE [Suspect]
     Active Substance: CYTARABINE
     Indication: Diffuse large B-cell lymphoma stage II
     Dosage: 2000 MG/M2, BID
     Route: 042
     Dates: start: 20210901, end: 20210902
  20. EPCORITAMAB [Suspect]
     Active Substance: EPCORITAMAB
     Indication: Diffuse large B-cell lymphoma stage II
     Dosage: FULL DOSE 0.8 MG, SINGLE
     Route: 058
     Dates: start: 20210922
  21. ACETAMINOPHEN [Concomitant]
     Active Substance: ACETAMINOPHEN
     Dates: start: 20210908, end: 20210922
  22. CYTARABINE [Suspect]
     Active Substance: CYTARABINE
     Indication: Diffuse large B-cell lymphoma stage II
     Dosage: 2000 MG/M2, BID
     Route: 042
     Dates: start: 20210902
  23. CHLORPHENIRAMINE MALEATE [Concomitant]
     Active Substance: CHLORPHENIRAMINE MALEATE
     Dates: start: 20210831, end: 20210831
  24. CHLORPHENIRAMINE MALEATE [Concomitant]
     Active Substance: CHLORPHENIRAMINE MALEATE
     Dates: start: 20210901, end: 20210901
  25. ACETAMINOPHEN [Concomitant]
     Active Substance: ACETAMINOPHEN
     Dates: start: 20210831, end: 20210908
  26. CYTARABINE [Suspect]
     Active Substance: CYTARABINE
     Indication: Diffuse large B-cell lymphoma stage II
     Dosage: 9 MG/M2, BID (2000 MG/M2 EVERY 12 HOURS)
     Route: 042
     Dates: start: 20210901, end: 20210901
  27. EPCORITAMAB [Suspect]
     Active Substance: EPCORITAMAB
     Indication: Diffuse large B-cell lymphoma stage II
     Dosage: 0.8 MILLIGRAM, SINGLE
     Route: 058
     Dates: start: 20210908, end: 20210908
  28. DEXAMETHASONE [Suspect]
     Active Substance: DEXAMETHASONE
     Indication: Diffuse large B-cell lymphoma stage II
     Dosage: SINGLE
     Route: 048
     Dates: start: 20210902, end: 20210903
  29. DEXAMETHASONE [Suspect]
     Active Substance: DEXAMETHASONE
     Indication: Diffuse large B-cell lymphoma stage II
     Dosage: SINGLE
     Route: 042
     Dates: start: 20210908, end: 20210908
  30. DEXAMETHASONE [Suspect]
     Active Substance: DEXAMETHASONE
     Indication: Diffuse large B-cell lymphoma stage II
     Dosage: SINGLE
     Route: 048
     Dates: start: 20210908
  31. DEXAMETHASONE [Suspect]
     Active Substance: DEXAMETHASONE
     Dosage: 16 MG, QD
     Route: 048
     Dates: start: 20210909, end: 20210911
  32. DEXAMETHASONE [Suspect]
     Active Substance: DEXAMETHASONE
     Dosage: 16 MG, QD
     Route: 048
     Dates: start: 20210923, end: 20210925
  33. DEXAMETHASONE [Suspect]
     Active Substance: DEXAMETHASONE
     Indication: Diffuse large B-cell lymphoma stage II
     Dosage: 16 MG, SINGLE
     Route: 048
     Dates: start: 20210922, end: 20210922
  34. CYTARABINE [Suspect]
     Active Substance: CYTARABINE
     Indication: Diffuse large B-cell lymphoma stage II

REACTIONS (4)
  - Thrombocytopenia [Recovered/Resolved]
  - Cellulitis [Recovered/Resolved]
  - Neutropenic infection [Not Recovered/Not Resolved]
  - Product use issue [Unknown]

NARRATIVE: CASE EVENT DATE: 20210910
